FAERS Safety Report 24722126 (Version 1)
Quarter: 2024Q4

REPORT INFORMATION
  Report Type: Spontaneous
  Country: US (occurrence: US)
  Receive Date: 20241211
  Receipt Date: 20241211
  Transmission Date: 20250114
  Serious: No
  Sender: Unknown Manufacturer
  Company Number: US-OTTER-US-2024AST000070

PATIENT
  Sex: Male

DRUGS (1)
  1. SYMPAZAN [Suspect]
     Active Substance: CLOBAZAM
     Indication: Product used for unknown indication
     Dosage: UNK
     Route: 048

REACTIONS (3)
  - Ill-defined disorder [Unknown]
  - Product taste abnormal [Unknown]
  - Product dosage form issue [Unknown]
